FAERS Safety Report 9547268 (Version 1)
Quarter: 2013Q2

REPORT INFORMATION
  Report Type: Spontaneous
  Country: US (occurrence: None)
  Receive Date: 20130606
  Receipt Date: 20130606
  Transmission Date: 20140414
  Serious: Yes (Other)
  Sender: FDA-Public Use
  Company Number: 163-POMAL-13044263

PATIENT
  Age: 38 Year
  Sex: Male

DRUGS (6)
  1. POMALYST [Suspect]
     Indication: PLASMA CELL MYELOMA
     Dosage: 4 MG, 21 IN 28 D, PO
     Route: 048
     Dates: start: 20130222
  2. METOPROLOL TARTRATE (METOPROLOL TARTRATE) [Concomitant]
  3. HYDROCODONE /APAP (VICODIN) [Concomitant]
  4. ALPRAZOLAM (ALPRAZOLAM) [Concomitant]
  5. FENTANYL (FENTANYL) [Concomitant]
  6. ALBUTEROL SULFATE (SALBUTAMOL SULFATE) [Concomitant]

REACTIONS (2)
  - Dyspnoea [None]
  - Pain [None]
